FAERS Safety Report 15276069 (Version 7)
Quarter: 2019Q1

REPORT INFORMATION
  Report Type: Report from Study
  Country: US (occurrence: US)
  Receive Date: 20180814
  Receipt Date: 20190301
  Transmission Date: 20190417
  Serious: No
  Sender: FDA-Public Use
  Company Number: PHEH2018US033690

PATIENT
  Age: 4 Year
  Sex: Female
  Weight: 24.49 kg

DRUGS (4)
  1. ILARIS [Suspect]
     Active Substance: CANAKINUMAB
     Dosage: UNK
     Route: 065
     Dates: start: 20180813
  2. ILARIS [Suspect]
     Active Substance: CANAKINUMAB
     Dosage: UNK
     Route: 065
     Dates: start: 20190116
  3. ILARIS [Suspect]
     Active Substance: CANAKINUMAB
     Indication: STILL^S DISEASE
     Dosage: 90 MG, EVERY 5 WEEKS
     Route: 058
  4. ILARIS [Suspect]
     Active Substance: CANAKINUMAB
     Dosage: 90 MG, EVERY 5 WEEKS
     Route: 058
     Dates: start: 20180514

REACTIONS (9)
  - Arthralgia [Unknown]
  - Crepitations [Unknown]
  - Tonsillitis [Unknown]
  - Cough [Unknown]
  - Pyrexia [Recovering/Resolving]
  - Streptococcal infection [Recovering/Resolving]
  - Incorrect dose administered [Unknown]
  - Constipation [Unknown]
  - Inappropriate schedule of product administration [Unknown]

NARRATIVE: CASE EVENT DATE: 20180804
